FAERS Safety Report 4528528-4 (Version None)
Quarter: 2004Q4

REPORT INFORMATION
  Report Type: 
  Country: None (occurrence: None)
  Receive Date: 20041216
  Receipt Date: 20040804
  Transmission Date: 20050328
  Serious: No
  Sender: FDA-Public Use
  Company Number: US-BRISTOL-MYERS SQUIBB COMPANY-12660742

PATIENT
  Age: 69 Year
  Sex: Female
  Weight: 55 kg

DRUGS (9)
  1. CHOLESTYRAMINE [Suspect]
     Indication: IRRITABLE BOWEL SYNDROME
     Dosage: DOSAGE FORM = SCOOP
     Route: 048
  2. MULTI-VITAMIN [Concomitant]
  3. VITAMIN E [Concomitant]
  4. CALCIUM [Concomitant]
  5. VITAMIN B-12 [Concomitant]
  6. COENZYME Q10 [Concomitant]
  7. CHONDROITIN + GLUCOSAMINE [Concomitant]
  8. VENASTAT [Concomitant]
  9. METAMUCIL-2 [Concomitant]

REACTIONS (3)
  - DYSPNOEA [None]
  - FATIGUE [None]
  - HOT FLUSH [None]
